FAERS Safety Report 7309401-5 (Version None)
Quarter: 2011Q1

REPORT INFORMATION
  Report Type: 
  Country: None (occurrence: None)
  Receive Date: 20110211
  Receipt Date: 20110126
  Transmission Date: 20110831
  Serious: Yes (Other)
  Sender: FDA-Public Use
  Company Number: US-DEXPHARM-20110138

PATIENT
  Sex: Female
  Weight: 72 kg

DRUGS (2)
  1. OMEPRAZOLE [Suspect]
     Indication: GASTROOESOPHAGEAL REFLUX DISEASE
     Dosage: 20 MG ONCE A DAY, ORAL
     Route: 048
     Dates: start: 20110112
  2. VALSARTAN [Concomitant]

REACTIONS (1)
  - DRUG HYPERSENSITIVITY [None]
